FAERS Safety Report 10359196 (Version 1)
Quarter: 2014Q3

REPORT INFORMATION
  Report Type: Spontaneous
  Country: US (occurrence: None)
  Receive Date: 20140731
  Receipt Date: 20140731
  Transmission Date: 20150326
  Serious: Yes (Disabling)
  Sender: FDA-Public Use
  Company Number: None

PATIENT
  Age: 17 Year
  Sex: Female
  Weight: 65.77 kg

DRUGS (1)
  1. LEVAQUIN [Suspect]
     Active Substance: LEVOFLOXACIN
     Indication: SINUSITIS
     Dosage: 3 THREE TIMES DAILY TAKEN BY MOUTH
     Route: 048

REACTIONS (8)
  - Paraesthesia [None]
  - Fatigue [None]
  - Tremor [None]
  - Burning sensation [None]
  - Formication [None]
  - Impaired work ability [None]
  - Muscular weakness [None]
  - Nerve injury [None]

NARRATIVE: CASE EVENT DATE: 20110216
